FAERS Safety Report 8368546-1 (Version None)
Quarter: 2012Q2

REPORT INFORMATION
  Report Type: 
  Country: None (occurrence: None)
  Receive Date: 20120518
  Receipt Date: 20120507
  Transmission Date: 20120825
  Serious: Yes (Hospitalization)
  Sender: FDA-Public Use
  Company Number: IT-BIOGENIDEC-2012BI016062

PATIENT
  Age: 52 Year
  Sex: Female

DRUGS (4)
  1. NEBIVOLOLE [Concomitant]
     Indication: HYPERTENSION
     Route: 048
     Dates: start: 20060101
  2. ALPRAZOLAM [Concomitant]
     Indication: ANXIETY
     Route: 048
     Dates: start: 20060101
  3. AVONEX [Suspect]
     Indication: MULTIPLE SCLEROSIS
     Route: 030
     Dates: start: 20110413
  4. ENALAPRIL + LORCAMIDPINE [Concomitant]
     Indication: HYPERTENSION
     Route: 048
     Dates: start: 20060101

REACTIONS (3)
  - HYPERHOMOCYSTEINAEMIA [None]
  - METHYLENETETRAHYDROFOLATE REDUCTASE DEFICIENCY [None]
  - CEREBROVASCULAR ACCIDENT [None]
